FAERS Safety Report 13076916 (Version 1)
Quarter: 2016Q4

REPORT INFORMATION
  Report Type: Spontaneous
  Country: GB (occurrence: GB)
  Receive Date: 20161230
  Receipt Date: 20161230
  Transmission Date: 20170207
  Serious: Yes (Hospitalization)
  Sender: FDA-Public Use
  Company Number: GB-PFIZER INC-2016601873

PATIENT
  Age: 42 Year
  Sex: Male

DRUGS (4)
  1. TAZOCIN [Suspect]
     Active Substance: PIPERACILLIN SODIUM\TAZOBACTAM SODIUM
     Indication: POSTOPERATIVE WOUND INFECTION
     Dosage: 4.5 G, 3X/DAY
     Route: 042
  2. CLOPIDOGREL [Concomitant]
     Active Substance: CLOPIDOGREL BISULFATE
  3. SIMVASTATIN. [Concomitant]
     Active Substance: SIMVASTATIN
  4. LEVETIRACETAM. [Concomitant]
     Active Substance: LEVETIRACETAM

REACTIONS (8)
  - Neutropenia [Unknown]
  - Nausea [Unknown]
  - Confusional state [Unknown]
  - Dizziness [Unknown]
  - Chills [Unknown]
  - Pain [Unknown]
  - Platelet count decreased [Not Recovered/Not Resolved]
  - Vomiting [Unknown]
